FAERS Safety Report 8984628 (Version 1)
Quarter: 2012Q4

REPORT INFORMATION
  Report Type: Spontaneous
  Country: FR (occurrence: None)
  Receive Date: 20121214
  Receipt Date: 20121214
  Transmission Date: 20130627
  Serious: Yes (Hospitalization)
  Sender: FDA-Public Use
  Company Number: DSA_61367_2012

PATIENT
  Age: 89 Year
  Sex: Female

DRUGS (6)
  1. FLAGYL [Suspect]
     Indication: GASTRITIS
     Dosage: (DF)
     Dates: start: 20120918, end: 20120929
  2. ACIDE FUSIDIQUE (10/11/2012 T0 10/20/20120 [Concomitant]
  3. ZECLAR (09/18/2012 TO 09/29/2012) [Concomitant]
  4. AMOXICILLIN (09/18/2012 TO 09/29/20120 [Concomitant]
  5. SPASFON /00765801/ (09/25/2012 TO CONTIUING) [Concomitant]
  6. ULTRA-LEVURE (09/25/2012 TO CONTINUING) [Concomitant]

REACTIONS (3)
  - Rash maculo-papular [None]
  - Hepatitis cholestatic [None]
  - Oedema peripheral [None]
